FAERS Safety Report 8332733-9 (Version None)
Quarter: 2012Q2

REPORT INFORMATION
  Report Type: 
  Country: None (occurrence: None)
  Receive Date: 20120503
  Receipt Date: 20120425
  Transmission Date: 20120825
  Serious: Yes (Other)
  Sender: FDA-Public Use
  Company Number: US-US-EMD SERONO, INC.-7128635

PATIENT
  Sex: Male

DRUGS (4)
  1. PRILOSEC [Concomitant]
     Indication: PRODUCT USED FOR UNKNOWN INDICATION
  2. REBIF [Suspect]
     Indication: MULTIPLE SCLEROSIS
     Route: 058
     Dates: start: 20100416
  3. NAPROXEN (ALEVE) [Suspect]
     Indication: INFLUENZA LIKE ILLNESS
  4. PROPRANOLOL [Concomitant]
     Indication: MIGRAINE

REACTIONS (3)
  - INFLUENZA LIKE ILLNESS [None]
  - ANAEMIA [None]
  - GASTRIC HAEMORRHAGE [None]
